FAERS Safety Report 9333776 (Version 2)
Quarter: 2013Q4

REPORT INFORMATION
  Report Type: Spontaneous
  Country: US (occurrence: US)
  Receive Date: 20130606
  Receipt Date: 20131008
  Transmission Date: 20140711
  Serious: No
  Sender: FDA-Public Use
  Company Number: US-AMGEN-USASP2013000125

PATIENT
  Age: 63 Year
  Sex: Female
  Weight: 59 kg

DRUGS (9)
  1. PROLIA [Suspect]
     Indication: OSTEOPOROSIS POSTMENOPAUSAL
     Dosage: 60 MG, Q6MO
     Route: 058
     Dates: start: 20121029
  2. PROLIA [Suspect]
     Dosage: UNK
  3. PRAVACHOL [Concomitant]
  4. SPIRONOLACTONE [Concomitant]
  5. IMITREX                            /01044801/ [Concomitant]
  6. NORTRIPTYLINE                      /00006502/ [Concomitant]
  7. PRAVASTATIN [Concomitant]
     Indication: HYPERLIPIDAEMIA
     Dosage: 10 MG, UNK
     Route: 048
     Dates: start: 20080116
  8. NORTRIPTYLINE [Concomitant]
     Indication: MIGRAINE
     Dosage: 10 MG, 3 CAPSULE DAILY
     Route: 048
  9. IMITREX                            /01044801/ [Concomitant]
     Indication: MIGRAINE
     Dosage: 50-100 MG, AS NECESSARY
     Route: 048

REACTIONS (3)
  - Madarosis [Not Recovered/Not Resolved]
  - Dermatitis contact [Unknown]
  - Eczema [Recovered/Resolved]
